FAERS Safety Report 24571666 (Version 3)
Quarter: 2025Q1

REPORT INFORMATION
  Report Type: Spontaneous
  Country: JP (occurrence: JP)
  Receive Date: 20241101
  Receipt Date: 20250331
  Transmission Date: 20250409
  Serious: Yes (Other)
  Sender: ALEXION PHARMACEUTICALS
  Company Number: JP-ASTRAZENECA-240116317_063010_P_1

PATIENT
  Age: 68 Year

DRUGS (4)
  1. DAPAGLIFLOZIN [Suspect]
     Active Substance: DAPAGLIFLOZIN
     Indication: Chronic kidney disease
     Dosage: 5 MILLIGRAM, QD
  2. AMITIZA [Concomitant]
     Active Substance: LUBIPROSTONE
     Dosage: IN THE MORNING AND EVENING
     Route: 065
  3. TENELIGLIPTIN [Concomitant]
     Active Substance: TENELIGLIPTIN
     Dosage: IN THE MORNING
     Route: 065
  4. ATORVASTATIN [Concomitant]
     Active Substance: ATORVASTATIN
     Dosage: IN THE EVENING
     Route: 065

REACTIONS (3)
  - Pyelonephritis [Recovered/Resolved]
  - Urinary retention [Recovered/Resolved]
  - Pyrexia [Recovered/Resolved]
